FAERS Safety Report 12635274 (Version 1)
Quarter: 2016Q3

REPORT INFORMATION
  Report Type: Spontaneous
  Country: DK (occurrence: FR)
  Receive Date: 20160808
  Receipt Date: 20160808
  Transmission Date: 20161109
  Serious: Yes (Hospitalization)
  Sender: FDA-Public Use
  Company Number: FR-FRI-1000086694

PATIENT
  Sex: Male

DRUGS (11)
  1. BISOPROLOL [Concomitant]
     Active Substance: BISOPROLOL
     Dosage: 1 DF
  2. LANSOPRAZOLE. [Concomitant]
     Active Substance: LANSOPRAZOLE
     Dosage: 1 DF
  3. CLOPIDOGREL [Interacting]
     Active Substance: CLOPIDOGREL BISULFATE
     Indication: VASCULAR DEVICE USER
     Dosage: 75 MG
     Route: 048
     Dates: end: 20160505
  4. FUROSEMIDE. [Concomitant]
     Active Substance: FUROSEMIDE
     Dosage: 1 DF
  5. XATRAL LP [Concomitant]
     Active Substance: ALFUZOSIN
     Dosage: 1 DF
  6. METHOTREXATE. [Concomitant]
     Active Substance: METHOTREXATE
     Dosage: 5.71 MG
  7. KARDEGIC [Interacting]
     Active Substance: ASPIRIN LYSINE
     Indication: VASCULAR DEVICE USER
     Dosage: 75 MG
     Route: 048
     Dates: end: 20160505
  8. AMLODIPINE [Concomitant]
     Active Substance: AMLODIPINE BESYLATE
     Dosage: 1 DF
  9. SIMVASTATIN. [Concomitant]
     Active Substance: SIMVASTATIN
     Dosage: 1 DF
  10. DOLIPRANE [Concomitant]
     Active Substance: ACETAMINOPHEN
  11. ESCITALOPRAM [Suspect]
     Active Substance: ESCITALOPRAM OXALATE
     Indication: DEPRESSIVE SYMPTOM
     Dosage: 10 MG
     Route: 048

REACTIONS (4)
  - Melaena [Recovered/Resolved]
  - Anaemia [Recovering/Resolving]
  - Drug interaction [Unknown]
  - Epistaxis [Recovered/Resolved]

NARRATIVE: CASE EVENT DATE: 2016
